FAERS Safety Report 11890639 (Version 2)
Quarter: 2016Q1

REPORT INFORMATION
  Report Type: Report from Study
  Country: US (occurrence: US)
  Receive Date: 20160105
  Receipt Date: 20160223
  Transmission Date: 20160526
  Serious: No
  Sender: FDA-Public Use
  Company Number: US-BIOGEN-2012BI054291

PATIENT
  Age: 45 Year
  Sex: Female

DRUGS (2)
  1. COPAXONE [Concomitant]
     Active Substance: GLATIRAMER ACETATE
  2. TYSABRI [Suspect]
     Active Substance: NATALIZUMAB
     Indication: MULTIPLE SCLEROSIS
     Route: 042
     Dates: start: 20110615

REACTIONS (2)
  - Cognitive disorder [Not Recovered/Not Resolved]
  - Stress [Not Recovered/Not Resolved]

NARRATIVE: CASE EVENT DATE: 201308
